FAERS Safety Report 9265206 (Version 1)
Quarter: 2013Q2

REPORT INFORMATION
  Report Type: Spontaneous
  Country: US (occurrence: US)
  Receive Date: 20130501
  Receipt Date: 20130501
  Transmission Date: 20140414
  Serious: No
  Sender: FDA-Public Use
  Company Number: US-009507513-1304USA014197

PATIENT
  Sex: Male

DRUGS (7)
  1. VICTRELIS [Suspect]
     Indication: HEPATITIS C
     Dosage: 200 MG, TID
     Route: 048
     Dates: start: 20120912
  2. RIBASPHERE [Suspect]
  3. PEGASYS [Suspect]
  4. METOPROLOL [Concomitant]
  5. HYDROCHLOROTHIAZIDE [Concomitant]
  6. VERAPAMIL [Concomitant]
  7. RANITIDINE [Concomitant]

REACTIONS (5)
  - Fatigue [Unknown]
  - Dizziness [Unknown]
  - Epistaxis [Unknown]
  - Rash generalised [Unknown]
  - Rash pruritic [Unknown]
